FAERS Safety Report 22123592 (Version 1)
Quarter: 2023Q1

REPORT INFORMATION
  Report Type: Spontaneous
  Country: JP (occurrence: None)
  Receive Date: 20230322
  Receipt Date: 20230322
  Transmission Date: 20230418
  Serious: Yes (Death)
  Sender: FDA-Public Use
  Company Number: 2023A065995

PATIENT
  Age: 81 Year
  Sex: Male
  Weight: 47 kg

DRUGS (9)
  1. CALQUENCE [Suspect]
     Active Substance: ACALABRUTINIB
     Indication: Chronic lymphocytic leukaemia recurrent
     Route: 048
     Dates: start: 20220118, end: 20220121
  2. CALQUENCE [Suspect]
     Active Substance: ACALABRUTINIB
     Indication: Chronic lymphocytic leukaemia recurrent
     Route: 048
     Dates: start: 20220315, end: 20221113
  3. CALQUENCE [Suspect]
     Active Substance: ACALABRUTINIB
     Indication: Chronic lymphocytic leukaemia recurrent
     Route: 048
     Dates: start: 20221121, end: 202303
  4. LEVOTHYROXINE [Concomitant]
     Active Substance: LEVOTHYROXINE
     Dosage: DOSE UNKNOWN
     Route: 048
  5. NAFTOPIDIL [Concomitant]
     Active Substance: NAFTOPIDIL
     Dosage: DOSE UNKNOWN
     Route: 048
  6. FEBUXOSTAT [Concomitant]
     Active Substance: FEBUXOSTAT
     Indication: Tumour lysis syndrome
     Dosage: DOSE UNKNOWN
     Route: 048
  7. TAMSULOSIN HYDROCHLORIDE [Concomitant]
     Active Substance: TAMSULOSIN HYDROCHLORIDE
     Dosage: DOSE UNKNOWN
     Route: 048
  8. ZOLPIDEM TARTRATE [Concomitant]
     Active Substance: ZOLPIDEM TARTRATE
     Dosage: DOSE UNKNOWN
     Route: 048
  9. FAMOTIDINE [Concomitant]
     Active Substance: FAMOTIDINE
     Indication: Gastritis prophylaxis
     Dosage: DOSE UNKNOWN
     Route: 048
     Dates: start: 20220427

REACTIONS (1)
  - Brain stem haemorrhage [Fatal]

NARRATIVE: CASE EVENT DATE: 20230301
